FAERS Safety Report 12564197 (Version 2)
Quarter: 2016Q4

REPORT INFORMATION
  Report Type: Report from Study
  Country: IE (occurrence: IE)
  Receive Date: 20160718
  Receipt Date: 20161205
  Transmission Date: 20170207
  Serious: Yes (Other)
  Sender: FDA-Public Use
  Company Number: PHFR2016IE005665

PATIENT
  Sex: Female

DRUGS (1)
  1. COSENTYX [Suspect]
     Active Substance: SECUKINUMAB
     Indication: PSORIATIC ARTHROPATHY
     Dosage: 300 MG, UNK
     Route: 058

REACTIONS (9)
  - Psoriasis [Recovered/Resolved]
  - Incorrect dose administered [Unknown]
  - Lower respiratory tract infection [Recovered/Resolved]
  - Oral candidiasis [Recovered/Resolved]
  - Joint swelling [Recovered/Resolved]
  - Drug ineffective [Unknown]
  - Arthralgia [Recovered/Resolved]
  - Influenza like illness [Recovered/Resolved]
  - Herpes zoster [Recovered/Resolved]
